FAERS Safety Report 17652350 (Version 1)
Quarter: 2020Q2

REPORT INFORMATION
  Report Type: Spontaneous
  Country: CA (occurrence: CA)
  Receive Date: 20200409
  Receipt Date: 20200409
  Transmission Date: 20200713
  Serious: Yes (Other)
  Sender: FDA-Public Use
  Company Number: CA-TEVA-2020-CA-1219721

PATIENT
  Age: 64 Year
  Sex: Female
  Weight: 76 kg

DRUGS (8)
  1. CALCIUM + VITAMIN D[CALCIUM;COLECALCIFEROL] [Concomitant]
  2. CLONIDINE. [Concomitant]
     Active Substance: CLONIDINE
  3. SYMBICORT [Concomitant]
     Active Substance: BUDESONIDE\FORMOTEROL FUMARATE DIHYDRATE
  4. CITALOPRAM [Concomitant]
     Active Substance: CITALOPRAM HYDROBROMIDE
  5. GABAPENTIN. [Suspect]
     Active Substance: GABAPENTIN
     Indication: FIBROMYALGIA
     Dosage: 300 MILLIGRAM DAILY;
     Route: 048
  6. DEXILANT [Concomitant]
     Active Substance: DEXLANSOPRAZOLE
  7. ATORVASTATIN CALCIUM. [Concomitant]
     Active Substance: ATORVASTATIN CALCIUM
  8. SYNTHROID [Concomitant]
     Active Substance: LEVOTHYROXINE SODIUM

REACTIONS (11)
  - Amnesia [Unknown]
  - Tremor [Unknown]
  - Headache [Unknown]
  - Off label use [Unknown]
  - Vulvovaginal dryness [Unknown]
  - Tooth loss [Unknown]
  - Autoimmune disorder [Unknown]
  - Dyskinesia [Unknown]
  - Product use in unapproved indication [Unknown]
  - Dry mouth [Unknown]
  - Dysphonia [Unknown]
